FAERS Safety Report 21766309 (Version 1)
Quarter: 2022Q4

REPORT INFORMATION
  Report Type: Spontaneous
  Country: IT (occurrence: IT)
  Receive Date: 20221222
  Receipt Date: 20221222
  Transmission Date: 20230113
  Serious: Yes (Other)
  Sender: FDA-Public Use
  Company Number: IT-009507513-2212ITA008122

PATIENT
  Sex: Male

DRUGS (2)
  1. PIFELTRO [Suspect]
     Active Substance: DORAVIRINE
     Indication: HIV infection
     Dosage: 7 TABLETS DAILY
     Route: 048
     Dates: end: 202208
  2. PIFELTRO [Suspect]
     Active Substance: DORAVIRINE
     Dosage: UNK
     Route: 048
     Dates: start: 202208

REACTIONS (7)
  - Prostatic dysplasia [Unknown]
  - Syncope [Unknown]
  - Lipase abnormal [Recovered/Resolved]
  - Lipase abnormal [Unknown]
  - Nightmare [Unknown]
  - Dizziness [Unknown]
  - Overdose [Unknown]

NARRATIVE: CASE EVENT DATE: 20220801
